FAERS Safety Report 15553219 (Version 1)
Quarter: 2018Q4

REPORT INFORMATION
  Report Type: Report from Study
  Country: US (occurrence: US)
  Receive Date: 20181026
  Receipt Date: 20181026
  Transmission Date: 20190205
  Serious: Yes (Hospitalization)
  Sender: FDA-Public Use
  Company Number: US-BIOGEN-2018BI00648158

PATIENT
  Sex: Female

DRUGS (2)
  1. TECFIDERA [Suspect]
     Active Substance: DIMETHYL FUMARATE
     Indication: MULTIPLE SCLEROSIS
     Route: 065
     Dates: start: 20130407
  2. TECFIDERA [Suspect]
     Active Substance: DIMETHYL FUMARATE
     Route: 065
     Dates: start: 20130408

REACTIONS (20)
  - Gallbladder disorder [Unknown]
  - Product dose omission [Unknown]
  - Abdominal pain [Unknown]
  - Dysphagia [Unknown]
  - Cough [Unknown]
  - Constipation [Unknown]
  - Aphasia [Unknown]
  - Memory impairment [Unknown]
  - Malaise [Unknown]
  - Foreign body in respiratory tract [Unknown]
  - Pneumonia [Unknown]
  - Anxiety [Unknown]
  - Nervousness [Unknown]
  - Lung disorder [Unknown]
  - Pneumothorax [Unknown]
  - Bone disorder [Unknown]
  - Osteopenia [Unknown]
  - Regurgitation [Unknown]
  - Abdominal distension [Unknown]
  - Dyspnoea [Unknown]

NARRATIVE: CASE EVENT DATE: 2017
